FAERS Safety Report 6894624-X (Version None)
Quarter: 2010Q3

REPORT INFORMATION
  Report Type: 
  Country: None (occurrence: None)
  Receive Date: 20100802
  Receipt Date: 20100721
  Transmission Date: 20110219
  Serious: Yes (Hospitalization, Other)
  Sender: FDA-Public Use
  Company Number: PHHY2010CH48292

PATIENT
  Age: 60 Year
  Sex: Male

DRUGS (4)
  1. MYFORTIC [Suspect]
     Indication: IMMUNOSUPPRESSION
     Dosage: UNK
     Route: 048
     Dates: start: 20080101
  2. MYFORTIC [Suspect]
     Indication: RENAL TRANSPLANT
  3. TACROLIMUS [Concomitant]
     Indication: IMMUNOSUPPRESSION
     Dosage: UNK
     Dates: start: 20070501
  4. IMUREK [Concomitant]
     Indication: IMMUNOSUPPRESSION
     Dosage: UNK
     Dates: start: 20080101

REACTIONS (16)
  - ADHESIOLYSIS [None]
  - BACTERAEMIA [None]
  - CANDIDIASIS [None]
  - CARDIOGENIC SHOCK [None]
  - CONFUSIONAL STATE [None]
  - DIALYSIS [None]
  - ENTEROCOCCAL INFECTION [None]
  - ILEUS [None]
  - KLEBSIELLA INFECTION [None]
  - LAPAROTOMY [None]
  - MYOCARDIAL INFARCTION [None]
  - PHLEBITIS [None]
  - PNEUMONIA [None]
  - RENAL IMPAIRMENT [None]
  - STAPHYLOCOCCAL INFECTION [None]
  - UROSEPSIS [None]
